FAERS Safety Report 6469496-8 (Version None)
Quarter: 2009Q4

REPORT INFORMATION
  Report Type: 
  Country: None (occurrence: None)
  Receive Date: 20091203
  Receipt Date: 20091123
  Transmission Date: 20100525
  Serious: Yes (Hospitalization)
  Sender: FDA-Public Use
  Company Number: BE-WYE-H12260909

PATIENT
  Age: 51 Year
  Sex: Male

DRUGS (10)
  1. PANTOZOL [Suspect]
     Indication: ABDOMINAL PAIN UPPER
     Route: 048
     Dates: start: 20091102, end: 20091104
  2. GLUCOPHAGE [Concomitant]
     Dosage: 850 MG, FREQUENCY UNSPECIFIED
  3. TOLINDOL [Concomitant]
     Indication: ECCHYMOSIS
     Dosage: UNSPECIFIED
     Dates: start: 20091020
  4. TOLINDOL [Concomitant]
     Indication: PAIN IN EXTREMITY
  5. VITAMIN B COMPLEX CAP [Concomitant]
     Dosage: UNSPECIFIED
  6. CRESTOR [Concomitant]
     Dosage: UNSPECIFIED
  7. ASPIRIN [Concomitant]
     Dosage: UNSPECIFIED
  8. CLAVUCID [Concomitant]
     Indication: ECCHYMOSIS
     Dosage: UNSPECIFIED
  9. CLAVUCID [Concomitant]
     Indication: PAIN IN EXTREMITY
  10. LERCANIDIPINE [Concomitant]
     Dosage: UNSPECIFIED
     Route: 048
     Dates: start: 20090928

REACTIONS (1)
  - RENAL FAILURE ACUTE [None]
